FAERS Safety Report 8358288-0 (Version None)
Quarter: 2012Q2

REPORT INFORMATION
  Report Type: 
  Country: None (occurrence: None)
  Receive Date: 20120514
  Receipt Date: 20120505
  Transmission Date: 20120825
  Serious: Yes (Other)
  Sender: FDA-Public Use
  Company Number: CHPA2012US010260

PATIENT
  Sex: Female

DRUGS (2)
  1. MUSCLE RELAXANTS [Suspect]
     Dosage: UNK, UNK
     Dates: start: 20120504, end: 20120504
  2. EXCEDRIN PM CAPLETS [Suspect]
     Dosage: UNK, UNK
     Dates: start: 20120504, end: 20120504

REACTIONS (3)
  - LOSS OF CONSCIOUSNESS [None]
  - LIVER INJURY [None]
  - OVERDOSE [None]
